FAERS Safety Report 8812648 (Version 1)
Quarter: 2012Q4

REPORT INFORMATION
  Report Type: 
  Country: US (occurrence: US)
  Receive Date: 20120927
  Receipt Date: 20120927
  Transmission Date: 20130627
  Serious: Yes (Hospitalization, Other)
  Sender: FDA-Public Use
  Company Number: PHHY2012US081766

PATIENT
  Age: 20 Year
  Sex: Male

DRUGS (6)
  1. ESCITALOPRAM [Suspect]
     Indication: DEPRESSION
     Dosage: 20 mg per day
  2. ESCITALOPRAM [Suspect]
     Indication: ANXIETY
  3. CLONAZEPAM [Suspect]
  4. QUETIAPINE [Suspect]
     Dosage: 100 mg, UNK
  5. COCAINE [Suspect]
  6. PERCOCET [Suspect]

REACTIONS (18)
  - Serotonin syndrome [Recovering/Resolving]
  - Mental disorder [Recovering/Resolving]
  - Agitation [Recovering/Resolving]
  - Disorientation [Recovering/Resolving]
  - Confusional state [Recovering/Resolving]
  - Lethargy [Recovering/Resolving]
  - Communication disorder [Recovering/Resolving]
  - Anxiety [Recovering/Resolving]
  - Clonus [Unknown]
  - Body temperature increased [Recovering/Resolving]
  - Hypopnoea [Recovering/Resolving]
  - Respiratory rate decreased [Recovering/Resolving]
  - Hyperhidrosis [Unknown]
  - Hyperreflexia [Unknown]
  - Muscle rigidity [Unknown]
  - Tachycardia [Recovering/Resolving]
  - Intentional overdose [Unknown]
  - Wrong technique in drug usage process [Unknown]
